FAERS Safety Report 5572438-0 (Version None)
Quarter: 2007Q4

REPORT INFORMATION
  Report Type: 
  Country: None (occurrence: None)
  Receive Date: 20071222
  Receipt Date: 20071211
  Transmission Date: 20080405
  Serious: Yes (Other)
  Sender: FDA-Public Use
  Company Number: US-PFIZER INC-2007105649

PATIENT
  Sex: Female
  Weight: 90.7 kg

DRUGS (4)
  1. CHANTIX [Suspect]
     Indication: SMOKING CESSATION THERAPY
     Dosage: TEXT:EVERY DAY
  2. MICARDIS [Concomitant]
  3. PRILOSEC [Concomitant]
  4. VITAMIN CAP [Concomitant]

REACTIONS (7)
  - ABDOMINAL PAIN UPPER [None]
  - CHROMATURIA [None]
  - DUODENAL ULCER [None]
  - HEPATIC ENZYME INCREASED [None]
  - INFLUENZA [None]
  - NAUSEA [None]
  - PRURITUS [None]
